FAERS Safety Report 17194850 (Version 3)
Quarter: 2020Q3

REPORT INFORMATION
  Report Type: Report from Study
  Country: JP (occurrence: JP)
  Receive Date: 20191224
  Receipt Date: 20200917
  Transmission Date: 20201102
  Serious: Yes (Other)
  Sender: FDA-Public Use
  Company Number: JP-GLAXOSMITHKLINE-JP2019JPN231639

PATIENT
  Age: 5 Decade
  Sex: Female
  Weight: 53 kg

DRUGS (28)
  1. BELIMUMAB [Suspect]
     Active Substance: BELIMUMAB
     Dosage: 10 MG/KG, ONCE IN EVERY FOUR WEEKS
     Route: 041
     Dates: start: 20181016, end: 20190205
  2. BELIMUMAB [Suspect]
     Active Substance: BELIMUMAB
     Dosage: 10 MG/KG, ONCE IN EVERY FOUR WEEKS
     Route: 041
     Dates: start: 20190305, end: 20190730
  3. ROHYPNOL TABLETS [Concomitant]
     Dosage: UNK
  4. PURSENNID TABLETS [Concomitant]
     Indication: CONSTIPATION
     Dosage: UNK
  5. AKINETON [Concomitant]
     Active Substance: BIPERIDEN HYDROCHLORIDE
     Indication: PARKINSONISM
     Dosage: UNK
  6. VALTREX TABLETS [Concomitant]
     Indication: HERPES SIMPLEX
     Dosage: UNK
  7. CELECOX TABLETS [Concomitant]
     Indication: SYSTEMIC LUPUS ERYTHEMATOSUS
     Dosage: UNK
  8. NEXIUM [Concomitant]
     Active Substance: ESOMEPRAZOLE MAGNESIUM
     Dosage: UNK
  9. EDIROL CAPSULE [Concomitant]
     Dosage: UNK
  10. FERRUM CAPSULES [Concomitant]
     Dosage: UNK
  11. LAMICTAL [Concomitant]
     Active Substance: LAMOTRIGINE
     Dosage: UNK
  12. CYMBALTA [Concomitant]
     Active Substance: DULOXETINE HYDROCHLORIDE
     Dosage: UNK
  13. NEORAL [Suspect]
     Active Substance: CYCLOSPORINE
     Indication: SYSTEMIC LUPUS ERYTHEMATOSUS
     Dosage: UNK
     Route: 048
  14. VOLTAREN [Suspect]
     Active Substance: DICLOFENAC SODIUM
     Indication: SYSTEMIC LUPUS ERYTHEMATOSUS
     Dosage: UNK
     Route: 048
  15. CYTOTEC TABLET [Concomitant]
     Indication: PROPHYLAXIS AGAINST GASTROINTESTINAL ULCER
     Dosage: UNK
  16. MEILAX [Concomitant]
     Active Substance: ETHYL LOFLAZEPATE
     Dosage: UNK
  17. DORAL [Concomitant]
     Active Substance: QUAZEPAM
     Indication: INSOMNIA
     Dosage: UNK
  18. BELIMUMAB [Suspect]
     Active Substance: BELIMUMAB
     Indication: SYSTEMIC LUPUS ERYTHEMATOSUS
     Dosage: 10 MG/KG, ONCE IN EVERY TWO WEEKS
     Route: 041
     Dates: start: 20180823, end: 20180920
  19. RIVOTRIL [Concomitant]
     Active Substance: CLONAZEPAM
     Dosage: UNK
  20. RESLIN TABLETS [Concomitant]
     Dosage: UNK
  21. BOFUTSUSHOSAN [Concomitant]
     Active Substance: HERBALS
     Indication: CONSTIPATION
     Dosage: UNK
  22. MEDROL TABLETS [Concomitant]
     Dosage: 18 MG, QOD
     Dates: start: 20190109, end: 20190401
  23. ABILIFY [Concomitant]
     Active Substance: ARIPIPRAZOLE
     Dosage: UNK
  24. MEDROL TABLETS [Concomitant]
     Dosage: 16 MG, QOD
     Dates: start: 20190402
  25. MEDROL TABLETS [Concomitant]
     Indication: SYSTEMIC LUPUS ERYTHEMATOSUS
     Dosage: 20 MG, QOD
     Dates: start: 20180823, end: 20190108
  26. BELIMUMAB [Suspect]
     Active Substance: BELIMUMAB
     Dosage: 10 MG/KG
     Route: 041
     Dates: start: 20190826
  27. PLAQUENIL TABLETS (HYDROXYCHLOROQUINE SULFATE) [Concomitant]
     Indication: SYSTEMIC LUPUS ERYTHEMATOSUS
     Dosage: UNK
  28. MYSLEE TABLETS [Concomitant]
     Indication: INSOMNIA
     Dosage: UNK

REACTIONS (2)
  - Renal impairment [Recovering/Resolving]
  - Condition aggravated [Recovering/Resolving]

NARRATIVE: CASE EVENT DATE: 20190730
